FAERS Safety Report 9226107 (Version 2)
Quarter: 2013Q2

REPORT INFORMATION
  Report Type: Spontaneous
  Country: US (occurrence: US)
  Receive Date: 20130411
  Receipt Date: 20130418
  Transmission Date: 20140414
  Serious: Yes (Other)
  Sender: FDA-Public Use
  Company Number: CHPA2013US006031

PATIENT
  Age: 71 Year
  Sex: Female

DRUGS (2)
  1. CONTROL PLP [Suspect]
     Indication: SMOKING CESSATION THERAPY
     Dosage: 14 MG, QD
     Route: 062
     Dates: start: 201301
  2. CONTROL PLP [Suspect]
     Dosage: 21 MG, QD
     Route: 062

REACTIONS (6)
  - Diabetes mellitus [Not Recovered/Not Resolved]
  - Abdominal discomfort [Not Recovered/Not Resolved]
  - Rash papular [Unknown]
  - Application site pruritus [Recovered/Resolved]
  - Overdose [Unknown]
  - Treatment noncompliance [Unknown]
